FAERS Safety Report 8017917-1 (Version None)
Quarter: 2012Q1

REPORT INFORMATION
  Report Type: 
  Country: None (occurrence: None)
  Receive Date: 20120103
  Receipt Date: 20111226
  Transmission Date: 20120608
  Serious: Yes (Hospitalization)
  Sender: FDA-Public Use
  Company Number: JP-JNJFOC-20111211624

PATIENT
  Age: 31 Year
  Sex: Female

DRUGS (4)
  1. ADALIMUMAB [Suspect]
     Indication: CROHN'S DISEASE
     Route: 058
     Dates: start: 20100101
  2. REMICADE [Suspect]
     Dosage: SECOND DOSE
     Route: 042
     Dates: start: 20080101
  3. REMICADE [Suspect]
     Indication: CROHN'S DISEASE
     Route: 042
     Dates: start: 20080101
  4. AZATHIOPRINE SODIUM [Concomitant]
     Route: 048

REACTIONS (2)
  - ILEAL STENOSIS [None]
  - INTESTINAL OBSTRUCTION [None]
